FAERS Safety Report 13680710 (Version 2)
Quarter: 2017Q4

REPORT INFORMATION
  Report Type: Spontaneous
  Country: AU (occurrence: AU)
  Receive Date: 20170623
  Receipt Date: 20171110
  Transmission Date: 20180320
  Serious: Yes (Other)
  Sender: FDA-Public Use
  Company Number: AU-MACLEODS PHARMACEUTICALS US LTD-MAC2017005211

PATIENT

DRUGS (7)
  1. VENLAFAXINE [Suspect]
     Active Substance: VENLAFAXINE HYDROCHLORIDE
     Dosage: 150 MG, QD, SLOW RELEASE
     Route: 048
  2. PRAMIPEXOLE. [Suspect]
     Active Substance: PRAMIPEXOLE
     Indication: SUICIDAL IDEATION
     Dosage: 3 MG, UNK
     Route: 048
  3. PRAMIPEXOLE. [Suspect]
     Active Substance: PRAMIPEXOLE
     Indication: RESTLESS LEGS SYNDROME
     Dosage: 0.125 MG, QD
     Route: 048
  4. FLUDROCORTISONE [Concomitant]
     Active Substance: FLUDROCORTISONE
     Indication: ORTHOSTATIC HYPOTENSION
     Dosage: UNK
     Route: 065
  5. VENLAFAXINE [Suspect]
     Active Substance: VENLAFAXINE HYDROCHLORIDE
     Indication: SUICIDAL IDEATION
     Dosage: 2250 MG, UNK
     Route: 048
  6. MIRTAZAPINE. [Suspect]
     Active Substance: MIRTAZAPINE
     Indication: SUICIDAL IDEATION
     Dosage: 360 MG, UNK
     Route: 048
  7. MIRTAZAPINE. [Suspect]
     Active Substance: MIRTAZAPINE
     Dosage: 15 MG, QD
     Route: 048

REACTIONS (18)
  - Mobility decreased [Recovered/Resolved]
  - Toxicity to various agents [Recovering/Resolving]
  - Hypervigilance [Recovering/Resolving]
  - Intentional overdose [Recovering/Resolving]
  - Dysuria [Recovered/Resolved]
  - Dizziness [Recovering/Resolving]
  - Hallucination, visual [Recovered/Resolved]
  - Sinus tachycardia [Recovering/Resolving]
  - Blood lactic acid increased [Recovering/Resolving]
  - Ataxia [Recovering/Resolving]
  - Balance disorder [Recovering/Resolving]
  - Disturbance in attention [Recovering/Resolving]
  - Urinary retention [Recovered/Resolved]
  - Heart rate increased [Recovering/Resolving]
  - Pressure of speech [Recovering/Resolving]
  - Feeling jittery [Recovering/Resolving]
  - Agitation [Recovered/Resolved]
  - Myoclonus [Recovering/Resolving]
